FAERS Safety Report 8433669-5 (Version None)
Quarter: 2012Q2

REPORT INFORMATION
  Report Type: 
  Country: None (occurrence: None)
  Receive Date: 20120323
  Receipt Date: 20110620
  Transmission Date: 20120825
  Serious: Yes (Other)
  Sender: FDA-Public Use
  Company Number: 163-21880-11062912

PATIENT
  Sex: Female

DRUGS (4)
  1. REVLIMID [Suspect]
     Indication: MULTIPLE MYELOMA
     Dosage: 5;10 MG, DAYS 1-21 Q 28 DAYS,  1 IN 1 D, PO
     Route: 048
     Dates: start: 20091001
  2. REVLIMID [Suspect]
     Indication: MULTIPLE MYELOMA
     Dosage: 5;10 MG, DAYS 1-21 Q 28 DAYS,  1 IN 1 D, PO
     Route: 048
     Dates: start: 20100401
  3. ASPIRIN [Concomitant]
  4. REVLIMID [Suspect]

REACTIONS (3)
  - COAGULOPATHY [None]
  - DIARRHOEA [None]
  - PRURITUS [None]
